FAERS Safety Report 14356454 (Version 1)
Quarter: 2018Q1

REPORT INFORMATION
  Report Type: Spontaneous
  Country: US (occurrence: US)
  Receive Date: 20180105
  Receipt Date: 20180105
  Transmission Date: 20180509
  Serious: Yes (Other)
  Sender: FDA-Public Use
  Company Number: US-LANNETT COMPANY, INC.-US-2017LAN001302

PATIENT
  Age: 56 Year
  Sex: Male

DRUGS (1)
  1. COCAINE [Suspect]
     Active Substance: COCAINE
     Indication: EPISTAXIS
     Dosage: 160 MG PLACED IN EACH NARIS WITH TWO COTTON PLEDGETS
     Route: 061

REACTIONS (2)
  - Cardiotoxicity [Recovered/Resolved]
  - Product use in unapproved indication [Unknown]
